FAERS Safety Report 16217479 (Version 1)
Quarter: 2019Q2

REPORT INFORMATION
  Report Type: Report from Study
  Country: BR (occurrence: BR)
  Receive Date: 20190419
  Receipt Date: 20190419
  Transmission Date: 20190711
  Serious: Yes (Other)
  Sender: FDA-Public Use
  Company Number: BR-JNJFOC-20190424654

PATIENT
  Age: 50 Year
  Sex: Female

DRUGS (2)
  1. SIMPONI [Suspect]
     Active Substance: GOLIMUMAB
     Indication: EXOSTOSIS
     Route: 058
     Dates: start: 20140707
  2. SIMPONI [Suspect]
     Active Substance: GOLIMUMAB
     Indication: OSTEOPOROSIS
     Route: 058
     Dates: start: 20140707

REACTIONS (5)
  - Pneumonia [Recovered/Resolved]
  - Off label use [Unknown]
  - Influenza [Not Recovered/Not Resolved]
  - Product use in unapproved indication [Unknown]
  - Spinal pain [Unknown]

NARRATIVE: CASE EVENT DATE: 20140707
